FAERS Safety Report 13352688 (Version 2)
Quarter: 2017Q1

REPORT INFORMATION
  Report Type: Report from Study
  Country: None (occurrence: RO)
  Receive Date: 20170320
  Receipt Date: 20170327
  Transmission Date: 20170429
  Serious: Yes (Other)
  Sender: FDA-Public Use
  Company Number: RO-ABBVIE-17P-135-1910005-00

PATIENT
  Age: 61 Year
  Sex: Male

DRUGS (6)
  1. MADOPAR HBS [Concomitant]
     Active Substance: BENSERAZIDE HYDROCHLORIDE\LEVODOPA
     Indication: PRODUCT USED FOR UNKNOWN INDICATION
  2. LEPONEX [Concomitant]
     Active Substance: CLOZAPINE
     Indication: PRODUCT USED FOR UNKNOWN INDICATION
     Dosage: 1/2 TABLET- IN THE EVENING
  3. ASTONIN [Concomitant]
     Indication: PRODUCT USED FOR UNKNOWN INDICATION
  4. AZILECT [Concomitant]
     Active Substance: RASAGILINE MESYLATE
     Indication: PRODUCT USED FOR UNKNOWN INDICATION
  5. BROMAZEPAM [Concomitant]
     Active Substance: BROMAZEPAM
     Indication: PRODUCT USED FOR UNKNOWN INDICATION
     Dosage: 1/2 TABLET- IN THE EVENING
  6. DUODOPA [Suspect]
     Active Substance: CARBIDOPA\LEVODOPA
     Indication: PARKINSON^S DISEASE
     Dosage: 16/24??6.5/3.5/1
     Route: 050
     Dates: start: 20131001

REACTIONS (2)
  - Tooth disorder [Recovered/Resolved]
  - Seizure [Recovering/Resolving]

NARRATIVE: CASE EVENT DATE: 20170311
